FAERS Safety Report 4724247-X (Version None)
Quarter: 2005Q3

REPORT INFORMATION
  Report Type: 
  Country: None (occurrence: None)
  Receive Date: 20050721
  Receipt Date: 20050718
  Transmission Date: 20060218
  Serious: Yes (Life-Threatening, Hospitalization)
  Sender: FDA-Public Use
  Company Number: GBWYE758720JUN05

PATIENT
  Age: 41 Year
  Sex: Female

DRUGS (7)
  1. EFFEXOR [Suspect]
     Dosage: SEE IMAGE
     Route: 048
     Dates: start: 20050101, end: 20050101
  2. EFFEXOR [Suspect]
     Dosage: SEE IMAGE
     Route: 048
     Dates: start: 20050101, end: 20050101
  3. EFFEXOR [Suspect]
     Dosage: SEE IMAGE
     Route: 048
     Dates: start: 20050101, end: 20050101
  4. EFFEXOR [Suspect]
     Dosage: SEE IMAGE
     Route: 048
     Dates: end: 20050101
  5. CITALOPRAM HYDROBROMIDE [Concomitant]
  6. DIAZEPAM [Concomitant]
  7. ZOPICLONE (ZOPICLONE) [Concomitant]

REACTIONS (13)
  - AGGRESSION [None]
  - ANGER [None]
  - CHILLS [None]
  - DEPRESSED MOOD [None]
  - DEPRESSION [None]
  - DRUG WITHDRAWAL SYNDROME [None]
  - HEADACHE [None]
  - HYPERHIDROSIS [None]
  - INTENTIONAL MISUSE [None]
  - MULTIPLE DRUG OVERDOSE [None]
  - PARAESTHESIA [None]
  - SUICIDE ATTEMPT [None]
  - SYNCOPE [None]
